FAERS Safety Report 16596656 (Version 1)
Quarter: 2019Q3

REPORT INFORMATION
  Report Type: Spontaneous
  Country: US (occurrence: US)
  Receive Date: 20190718
  Receipt Date: 20190718
  Transmission Date: 20191004
  Serious: No
  Sender: FDA-Public Use
  Company Number: None

PATIENT
  Age: 58 Year
  Sex: Female

DRUGS (10)
  1. ESTRADIOL. [Concomitant]
     Active Substance: ESTRADIOL
  2. MAGNESIUM [Concomitant]
     Active Substance: MAGNESIUM
  3. VITAMIN C [Concomitant]
     Active Substance: ASCORBIC ACID
  4. VITAMIN D [Concomitant]
     Active Substance: VITAMIN D NOS
  5. COQ10 [Concomitant]
     Active Substance: UBIDECARENONE
  6. PROBIOTIC [Concomitant]
     Active Substance: PROBIOTICS NOS
  7. TURMERIC [Concomitant]
     Active Substance: HERBALS\TURMERIC
  8. XIIDRA [Suspect]
     Active Substance: LIFITEGRAST
     Indication: DRY EYE
     Dosage: ?          QUANTITY:1 DROP(S);?
     Route: 047
     Dates: start: 20190502
  9. RED RICE YEAST [Concomitant]
     Active Substance: DIETARY SUPPLEMENT
  10. SYNTHROID [Concomitant]
     Active Substance: LEVOTHYROXINE SODIUM

REACTIONS (3)
  - Oropharyngeal discomfort [None]
  - Dysgeusia [None]
  - Chest discomfort [None]

NARRATIVE: CASE EVENT DATE: 20190619
